FAERS Safety Report 7954044-3 (Version None)
Quarter: 2011Q4

REPORT INFORMATION
  Report Type: 
  Country: None (occurrence: None)
  Receive Date: 20111202
  Receipt Date: 20111129
  Transmission Date: 20120403
  Serious: No
  Sender: FDA-Public Use
  Company Number: US-TEVA-311647USA

PATIENT
  Sex: Female

DRUGS (2)
  1. LOESTRIN 24 FE [Concomitant]
     Indication: CONTRACEPTION
     Route: 048
  2. PLAN B ONE-STEP [Suspect]
     Indication: POST COITAL CONTRACEPTION
     Dosage: 1.5 MILLIGRAM;
     Route: 048
     Dates: start: 20111127, end: 20111127

REACTIONS (3)
  - NAUSEA [None]
  - PYREXIA [None]
  - DIZZINESS [None]
